FAERS Safety Report 8233900-5 (Version None)
Quarter: 2012Q1

REPORT INFORMATION
  Report Type: 
  Country: None (occurrence: None)
  Receive Date: 20120326
  Receipt Date: 20120322
  Transmission Date: 20120608
  Serious: Yes (Hospitalization)
  Sender: FDA-Public Use
  Company Number: FR-SANOFI-AVENTIS-2012SA019906

PATIENT
  Age: 58 Year
  Sex: Male

DRUGS (4)
  1. PLAVIX [Suspect]
     Route: 048
     Dates: start: 20120217
  2. RAMIPRIL [Suspect]
     Route: 048
  3. CRESTOR [Suspect]
     Route: 048
     Dates: start: 20120217
  4. PROCORALAN [Suspect]
     Route: 048
     Dates: start: 20120217

REACTIONS (1)
  - DEEP VEIN THROMBOSIS [None]
